FAERS Safety Report 6495462-2 (Version None)
Quarter: 2009Q4

REPORT INFORMATION
  Report Type: 
  Country: None (occurrence: None)
  Receive Date: 20091214
  Receipt Date: 20090626
  Transmission Date: 20100525
  Serious: No
  Sender: FDA-Public Use
  Company Number: US-BRISTOL-MYERS SQUIBB COMPANY-14681480

PATIENT
  Age: 20 Year
  Sex: Male
  Weight: 100 kg

DRUGS (6)
  1. ABILIFY [Suspect]
     Indication: BIPOLAR DISORDER
     Dates: start: 20070601
  2. ABILIFY [Suspect]
     Indication: SCHIZOPHRENIA
     Dates: start: 20070601
  3. ABILIFY [Suspect]
     Indication: PSYCHOTIC DISORDER
     Dates: start: 20070601
  4. CLOZARIL [Suspect]
     Indication: SCHIZOPHRENIA
  5. CLOZARIL [Suspect]
     Indication: BIPOLAR DISORDER
  6. CLOZARIL [Suspect]
     Indication: PSYCHOTIC DISORDER

REACTIONS (3)
  - FATIGUE [None]
  - INCREASED APPETITE [None]
  - WEIGHT INCREASED [None]
